FAERS Safety Report 5689798-2 (Version None)
Quarter: 2008Q1

REPORT INFORMATION
  Report Type: 
  Country: None (occurrence: None)
  Receive Date: 20080328
  Receipt Date: 20080321
  Transmission Date: 20080703
  Serious: Yes (Hospitalization)
  Sender: FDA-Public Use
  Company Number: 2005BI020780

PATIENT
  Age: 56 Year
  Sex: Female

DRUGS (10)
  1. AVONEX [Suspect]
     Indication: MULTIPLE SCLEROSIS
     Dosage: 30 UG QW IM
     Route: 030
     Dates: start: 19970301
  2. CYMBALTA [Concomitant]
  3. AMANTADINE HCL [Concomitant]
  4. PROTONIX [Concomitant]
  5. COLACE [Concomitant]
  6. FOLIC ACID [Concomitant]
  7. VYTORIN [Concomitant]
  8. LOPRESSOR [Concomitant]
  9. DIGOXIN [Concomitant]
  10. LASIX [Concomitant]

REACTIONS (3)
  - ANGINA UNSTABLE [None]
  - ARTERIOSCLEROSIS CORONARY ARTERY [None]
  - DYSPNOEA [None]
